FAERS Safety Report 9290731 (Version 4)
Quarter: 2018Q3

REPORT INFORMATION
  Report Type: Spontaneous
  Country: JP (occurrence: JP)
  Receive Date: 20130515
  Receipt Date: 20180817
  Transmission Date: 20181010
  Serious: Yes (Hospitalization, Other)
  Sender: FDA-Public Use
  Company Number: PHHY2013JP046638

PATIENT
  Age: 39 Year
  Sex: Male

DRUGS (6)
  1. CERTICAN [Suspect]
     Active Substance: EVEROLIMUS
     Indication: RENAL TRANSPLANT
     Route: 048
  2. SIMULECT [Suspect]
     Active Substance: BASILIXIMAB
     Indication: RENAL TRANSPLANT
     Route: 041
  3. PREDNISOLONE. [Concomitant]
     Active Substance: PREDNISOLONE
     Indication: RENAL TRANSPLANT
  4. MIDAZOLAM [Concomitant]
     Active Substance: MIDAZOLAM HYDROCHLORIDE
  5. NEORAL [Suspect]
     Active Substance: CYCLOSPORINE
     Indication: RENAL TRANSPLANT
     Route: 048
  6. MIZORIBINE [Concomitant]
     Active Substance: MIZORIBINE
     Indication: RENAL TRANSPLANT

REACTIONS (2)
  - Diabetes mellitus [Recovering/Resolving]
  - Azotaemia [Recovering/Resolving]

NARRATIVE: CASE EVENT DATE: 20120312
